FAERS Safety Report 7340686-5 (Version None)
Quarter: 2011Q1

REPORT INFORMATION
  Report Type: 
  Country: None (occurrence: None)
  Receive Date: 20110309
  Receipt Date: 20110228
  Transmission Date: 20110831
  Serious: Yes (Other)
  Sender: FDA-Public Use
  Company Number: JP-ROCHE-762405

PATIENT

DRUGS (2)
  1. ASPIRIN [Suspect]
     Route: 065
  2. TICLOPIDINE HCL [Suspect]
     Route: 065

REACTIONS (4)
  - GASTROINTESTINAL EROSION [None]
  - GASTROINTESTINAL HAEMORRHAGE [None]
  - SMALL INTESTINE ULCER [None]
  - ENDOSCOPY SMALL INTESTINE ABNORMAL [None]
